FAERS Safety Report 8374731-5 (Version None)
Quarter: 2012Q2

REPORT INFORMATION
  Report Type: 
  Country: None (occurrence: None)
  Receive Date: 20120521
  Receipt Date: 20120510
  Transmission Date: 20120825
  Serious: Yes (Hospitalization)
  Sender: FDA-Public Use
  Company Number: US-ACTELION-A-US2010-34729

PATIENT

DRUGS (5)
  1. CALCIUM CHANNEL BLOCKERS [Concomitant]
  2. TRACLEER [Suspect]
     Indication: PULMONARY ARTERIAL HYPERTENSION
     Dosage: UNK
     Route: 048
     Dates: start: 20091102
  3. REVATIO [Concomitant]
  4. DIURETIC [Concomitant]
  5. COUMADIN [Concomitant]

REACTIONS (19)
  - GASTROINTESTINAL HAEMORRHAGE [None]
  - COLONOSCOPY [None]
  - UPPER LIMB FRACTURE [None]
  - RECTAL HAEMORRHAGE [None]
  - CYSTITIS [None]
  - DYSPNOEA [None]
  - DIZZINESS [None]
  - JOINT DISLOCATION [None]
  - TRANSFUSION [None]
  - PULMONARY OEDEMA [None]
  - HAEMATOCHEZIA [None]
  - ANAEMIA [None]
  - FALL [None]
  - PACKED RED BLOOD CELL TRANSFUSION [None]
  - WHEEZING [None]
  - HEADACHE [None]
  - FLUID RETENTION [None]
  - PNEUMONIA [None]
  - VASCULAR CAUTERISATION [None]
